FAERS Safety Report 4556153-8 (Version None)
Quarter: 2005Q1

REPORT INFORMATION
  Report Type: 
  Country: None (occurrence: None)
  Receive Date: 20050119
  Receipt Date: 20050111
  Transmission Date: 20050727
  Serious: Yes (Hospitalization)
  Sender: FDA-Public Use
  Company Number: US-ABBOTT-05P-163-0285993-00

PATIENT
  Sex: Female
  Weight: 46.762 kg

DRUGS (17)
  1. HUMIRA [Suspect]
     Indication: RHEUMATOID ARTHRITIS
     Route: 058
     Dates: start: 20040827, end: 20041201
  2. HUMIRA [Suspect]
     Route: 058
     Dates: start: 20041231
  3. HYDROXYCHLOROQUINE PHOSPHATE [Concomitant]
     Indication: RHEUMATOID ARTHRITIS
     Route: 048
  4. PREDNISONE [Concomitant]
     Indication: RHEUMATOID ARTHRITIS
     Route: 048
  5. CALCIUM GLUCONATE [Concomitant]
     Indication: HYPOPARATHYROIDISM
     Route: 048
     Dates: start: 19720101
  6. CALCITRIOL [Concomitant]
     Indication: DRUG USE FOR UNKNOWN INDICATION
     Route: 048
     Dates: start: 19720101
  7. CALCITRIOL [Concomitant]
     Route: 048
     Dates: start: 19720101
  8. AMIODARONE [Concomitant]
     Indication: ATRIAL FIBRILLATION
     Route: 048
     Dates: start: 20020101
  9. AMITRIPTYLINE HYDROCHLORIDE [Concomitant]
     Indication: NEUROPATHY
     Route: 048
     Dates: start: 20020101
  10. LEVOTHYROXINE SODIUM [Concomitant]
     Indication: HYPOTHYROIDISM
     Route: 048
  11. ESTROTEST [Concomitant]
     Indication: DRUG USE FOR UNKNOWN INDICATION
     Route: 048
  12. SINGULAIR [Concomitant]
     Indication: ASTHMA
     Route: 048
  13. FUROSEMIDE [Concomitant]
     Indication: SWELLING
     Route: 048
  14. DARVOCET [Concomitant]
     Indication: PAIN
     Route: 048
  15. RAMIPRIL [Concomitant]
     Indication: BLOOD PRESSURE INCREASED
     Route: 048
  16. ALPRAZOLAM [Concomitant]
     Indication: DRUG USE FOR UNKNOWN INDICATION
     Route: 048
  17. MULTIVITAMIN [Concomitant]
     Indication: DRUG USE FOR UNKNOWN INDICATION
     Route: 048

REACTIONS (3)
  - BRONCHITIS [None]
  - STOMATITIS [None]
  - UPPER RESPIRATORY TRACT INFECTION [None]
